FAERS Safety Report 7701103-6 (Version None)
Quarter: 2011Q3

REPORT INFORMATION
  Report Type: 
  Country: None (occurrence: None)
  Receive Date: 20110819
  Receipt Date: 20110819
  Transmission Date: 20111222
  Serious: Yes (Hospitalization)
  Sender: FDA-Public Use
  Company Number: None

PATIENT
  Sex: Female

DRUGS (2)
  1. XELODA [Suspect]
     Indication: BREAST CANCER
     Dosage: SEE ITEM 5
  2. XELODA [Suspect]

REACTIONS (3)
  - DIARRHOEA [None]
  - BLOOD PRESSURE DECREASED [None]
  - SYNCOPE [None]
